FAERS Safety Report 8762850 (Version 2)
Quarter: 2013Q2

REPORT INFORMATION
  Report Type: Spontaneous
  Country: US (occurrence: US)
  Receive Date: 20120829
  Receipt Date: 20130417
  Transmission Date: 20140414
  Serious: No
  Sender: FDA-Public Use
  Company Number: US-PFIZER INC-2012209054

PATIENT
  Age: 77 Year
  Sex: Female
  Weight: 49.89 kg

DRUGS (3)
  1. LYRICA [Suspect]
     Dosage: 75 MG, 3X/DAY
     Route: 048
  2. MS CONTIN [Concomitant]
     Indication: BACK PAIN
     Dosage: UNK
  3. LORTAB [Concomitant]
     Indication: BACK PAIN
     Dosage: UNK

REACTIONS (3)
  - Malaise [Unknown]
  - Intentional drug misuse [Unknown]
  - Laryngitis [Unknown]
